FAERS Safety Report 8680948 (Version 2)
Quarter: 2013Q3

REPORT INFORMATION
  Report Type: Spontaneous
  Country: US (occurrence: US)
  Receive Date: 20120724
  Receipt Date: 20130827
  Transmission Date: 20140515
  Serious: Yes (Other)
  Sender: FDA-Public Use
  Company Number: US-PFIZER INC-2012176154

PATIENT
  Age: 22 Year
  Sex: Female

DRUGS (2)
  1. ETHINYL ESTRADIOL/NORGESTREL [Suspect]
     Indication: ORAL CONTRACEPTION
     Dosage: 0.3/0.03 MG, UNK
     Route: 048
     Dates: start: 20110702
  2. ETHINYL ESTRADIOL/NORGESTREL [Suspect]
     Dosage: 0.3 G, UNK
     Route: 048
     Dates: start: 201201

REACTIONS (3)
  - Product quality issue [Unknown]
  - Drug ineffective [Unknown]
  - Unintended pregnancy [Unknown]
